FAERS Safety Report 23348036 (Version 2)
Quarter: 2024Q1

REPORT INFORMATION
  Report Type: Report from Study
  Country: CA (occurrence: CA)
  Receive Date: 20231228
  Receipt Date: 20240123
  Transmission Date: 20240410
  Serious: Yes (Death, Other)
  Sender: FDA-Public Use
  Company Number: CA-TAIHOP-2023-011092

PATIENT
  Age: 64 Year
  Sex: Female

DRUGS (1)
  1. LONSURF [Suspect]
     Active Substance: TIPIRACIL HYDROCHLORIDE\TRIFLURIDINE
     Indication: Metastatic gastric cancer
     Dosage: DOSE, FREQUENCY, AND CURRENT CYCLE UNKNOWN.
     Route: 048
     Dates: start: 20231123

REACTIONS (3)
  - Death [Fatal]
  - Peripheral swelling [Unknown]
  - Suspected COVID-19 [Unknown]

NARRATIVE: CASE EVENT DATE: 20240111
